FAERS Safety Report 12101391 (Version 1)
Quarter: 2016Q1

REPORT INFORMATION
  Report Type: Spontaneous
  Country: US (occurrence: US)
  Receive Date: 20160222
  Receipt Date: 20160222
  Transmission Date: 20160526
  Serious: Yes (Life-Threatening)
  Sender: FDA-Public Use
  Company Number: US-SHIONOGI, INC-2015000362

PATIENT
  Sex: Male

DRUGS (4)
  1. AMPICILLIN [Suspect]
     Active Substance: AMPICILLIN
     Indication: SALMONELLOSIS
     Dosage: UNK
     Route: 065
     Dates: start: 1978, end: 1978
  2. SULFA                              /00076401/ [Suspect]
     Active Substance: SULFADIAZINE
     Indication: SALMONELLOSIS
     Dosage: UNK
     Route: 065
     Dates: start: 1978, end: 1978
  3. IODINE [Suspect]
     Active Substance: IODINE
     Indication: SALMONELLOSIS
     Dosage: UNK
     Route: 065
     Dates: start: 1978, end: 1978
  4. KEFLEX [Suspect]
     Active Substance: CEPHALEXIN
     Indication: SALMONELLOSIS
     Dosage: UNK
     Route: 065
     Dates: start: 1978, end: 1978

REACTIONS (1)
  - Drug ineffective for unapproved indication [Recovered/Resolved]

NARRATIVE: CASE EVENT DATE: 1978
